FAERS Safety Report 10213240 (Version 2)
Quarter: 2014Q2

REPORT INFORMATION
  Report Type: Spontaneous
  Country: RU (occurrence: RU)
  Receive Date: 20140603
  Receipt Date: 20140609
  Transmission Date: 20141212
  Serious: Yes (Hospitalization)
  Sender: FDA-Public Use
  Company Number: RU-ROCHE-1408142

PATIENT
  Age: 15 Year
  Sex: Female

DRUGS (3)
  1. ACTEMRA [Suspect]
     Indication: JUVENILE IDIOPATHIC ARTHRITIS
     Route: 065
     Dates: start: 2009
  2. METHOTREXATE [Concomitant]
  3. SANDIMMUN [Concomitant]

REACTIONS (3)
  - Joint arthroplasty [Unknown]
  - Osteotomy [Unknown]
  - Bone operation [Unknown]
